FAERS Safety Report 20895014 (Version 1)
Quarter: 2022Q2

REPORT INFORMATION
  Report Type: Report from Study
  Country: IT (occurrence: IT)
  Receive Date: 20220531
  Receipt Date: 20220531
  Transmission Date: 20220721
  Serious: Yes (Other)
  Sender: FDA-Public Use
  Company Number: None

PATIENT
  Age: 65 Year
  Sex: Male

DRUGS (6)
  1. FLUOROURACIL [Suspect]
     Active Substance: FLUOROURACIL
     Indication: Rectosigmoid cancer recurrent
     Dosage: 6336 MG CYCLICAL
     Route: 041
     Dates: start: 20150318, end: 20150810
  2. ZALTRAP [Suspect]
     Active Substance: ZIV-AFLIBERCEPT
     Indication: Rectosigmoid cancer recurrent
     Dosage: 272 MG CYCLICAL
     Route: 041
     Dates: start: 20150318, end: 20150810
  3. IRINOTECAN [Suspect]
     Active Substance: IRINOTECAN
     Indication: Rectosigmoid cancer recurrent
     Dosage: 211200 UG CYCLICAL
     Route: 041
     Dates: start: 20150318, end: 20150810
  4. TERAZOSIN MONOHYDROCHLORIDE DIHYDRATE [Concomitant]
     Indication: Product used for unknown indication
     Dates: start: 20150301, end: 20150901
  5. METOCLOPRAMIDE HYDROCHLORIDE [Concomitant]
     Active Substance: METOCLOPRAMIDE HYDROCHLORIDE
     Indication: Product used for unknown indication
     Dates: start: 20150415, end: 20150901
  6. TROXERUTIN [Concomitant]
     Active Substance: TROXERUTIN
     Indication: Product used for unknown indication
     Dates: start: 20150415, end: 20150727

REACTIONS (2)
  - Thrombocytopenia [Recovered/Resolved]
  - Hypertransaminasaemia [Unknown]

NARRATIVE: CASE EVENT DATE: 20150817
